FAERS Safety Report 9038598 (Version 1)
Quarter: 2013Q1

REPORT INFORMATION
  Report Type: Report from Study
  Country: US (occurrence: US)
  Receive Date: 20130129
  Receipt Date: 20130129
  Transmission Date: 20140127
  Serious: No
  Sender: FDA-Public Use
  Company Number: US-ABBOTT-12P-163-0935262-00

PATIENT
  Age: 24 Year
  Sex: Female

DRUGS (4)
  1. HUMIRA 40 MG/0.8 ML PEN [Suspect]
     Indication: CROHN^S DISEASE
     Dates: start: 20120331
  2. LEXAPRO [Concomitant]
     Indication: ANXIETY
     Dosage: 20 MG DAILY
     Route: 048
     Dates: start: 2007
  3. TOPAMAX [Concomitant]
     Indication: MIGRAINE
     Dosage: 100 MG DAILY
     Route: 048
     Dates: start: 2009
  4. ADVIL [Concomitant]
     Indication: PRODUCT USED FOR UNKNOWN INDICATION

REACTIONS (2)
  - Incorrect dose administered [Unknown]
  - Injection site swelling [Not Recovered/Not Resolved]
